FAERS Safety Report 9530792 (Version 1)
Quarter: 2013Q3

REPORT INFORMATION
  Report Type: Spontaneous
  Country: US (occurrence: None)
  Receive Date: 20130916
  Receipt Date: 20130916
  Transmission Date: 20140515
  Serious: Yes (Other)
  Sender: FDA-Public Use
  Company Number: None

PATIENT
  Sex: Female
  Weight: 70 kg

DRUGS (3)
  1. ROC MULTI-CORREXION EYE TREATMENT [Suspect]
     Indication: DRY SKIN PROPHYLAXIS
     Dosage: LESS THAN PENNY, TWICE TOPICAL
     Route: 061
     Dates: start: 20130801, end: 20130801
  2. ROC MULTI CORREXION LIFT ANTI-GRAVITY DAILY MOISTURIZER [Suspect]
  3. CENTRUM [Concomitant]

REACTIONS (3)
  - Expired drug administered [None]
  - Pruritus [None]
  - Swelling face [None]
